FAERS Safety Report 23629084 (Version 1)
Quarter: 2024Q1

REPORT INFORMATION
  Report Type: Spontaneous
  Country: FR (occurrence: FR)
  Receive Date: 20240313
  Receipt Date: 20240313
  Transmission Date: 20240410
  Serious: Yes (Hospitalization)
  Sender: FDA-Public Use
  Company Number: None

PATIENT
  Age: 60 Year
  Sex: Female
  Weight: 105 kg

DRUGS (7)
  1. SERTRALINE [Suspect]
     Active Substance: SERTRALINE HYDROCHLORIDE
     Indication: Product used for unknown indication
     Dosage: DURATION: 12 DAYS. BASE
     Route: 048
     Dates: start: 20240117, end: 20240129
  2. POLYETHYLENE GLYCOL 1000 [Suspect]
     Active Substance: POLYETHYLENE GLYCOL 1000
     Indication: Product used for unknown indication
     Route: 048
     Dates: end: 20240129
  3. ACETAMINOPHEN\OPIUM [Suspect]
     Active Substance: ACETAMINOPHEN\OPIUM
     Indication: Back pain
     Route: 048
     Dates: end: 20240129
  4. METFORMIN [Suspect]
     Active Substance: METFORMIN HYDROCHLORIDE
     Indication: Type 2 diabetes mellitus
     Route: 048
     Dates: end: 20240129
  5. URAPIDIL [Suspect]
     Active Substance: URAPIDIL
     Indication: Hypertension
     Route: 048
     Dates: end: 20240129
  6. OZEMPIC [Suspect]
     Active Substance: SEMAGLUTIDE
     Indication: Type 2 diabetes mellitus
     Route: 048
     Dates: end: 20240129
  7. EBASTINE [Suspect]
     Active Substance: EBASTINE
     Indication: Product used for unknown indication
     Route: 048
     Dates: end: 20240129

REACTIONS (1)
  - Pancreatitis acute [Recovering/Resolving]
